FAERS Safety Report 25016690 (Version 4)
Quarter: 2025Q3

REPORT INFORMATION
  Report Type: Spontaneous
  Country: EU (occurrence: EU)
  Receive Date: 20250227
  Receipt Date: 20250724
  Transmission Date: 20251021
  Serious: Yes (Other)
  Sender: CELLTRION
  Company Number: EU-CELLTRION INC.-2025PT005427

PATIENT

DRUGS (8)
  1. ADALIMUMAB [Suspect]
     Active Substance: ADALIMUMAB
     Indication: Behcet^s syndrome
     Dosage: 40 MG EVERY 2 WEEKS (DOSAGE1: UNIT=NOT AVAILABLE)
     Route: 058
  2. ADALIMUMAB [Suspect]
     Active Substance: ADALIMUMAB
     Indication: Behcet^s syndrome
     Dosage: 40 MG EVERY 2 WEEKS
     Route: 065
  3. AZATHIOPRINE [Suspect]
     Active Substance: AZATHIOPRINE
     Indication: Behcet^s syndrome
     Route: 065
  4. COLCHICINE [Suspect]
     Active Substance: COLCHICINE
     Indication: Behcet^s syndrome
     Route: 065
  5. PREDNISOLONE [Suspect]
     Active Substance: PREDNISOLONE
     Indication: Behcet^s syndrome
     Route: 065
  6. PREDNISOLONE [Suspect]
     Active Substance: PREDNISOLONE
     Indication: Optic neuropathy
     Route: 065
  7. METHOTREXATE [Suspect]
     Active Substance: METHOTREXATE
     Indication: Behcet^s syndrome
     Route: 065
  8. METHYLPREDNISOLONE [Suspect]
     Active Substance: METHYLPREDNISOLONE
     Indication: Product used for unknown indication

REACTIONS (14)
  - Optic neuropathy [Recovering/Resolving]
  - Iridocyclitis [Recovering/Resolving]
  - Drug intolerance [Unknown]
  - Autoimmune disorder [Recovering/Resolving]
  - Optic nerve disorder [Recovering/Resolving]
  - Symptom recurrence [Recovering/Resolving]
  - Mouth ulceration [Recovering/Resolving]
  - Visual acuity reduced [Recovering/Resolving]
  - Somatosensory evoked potentials [Recovering/Resolving]
  - Drug effective for unapproved indication [Unknown]
  - Therapy change [Unknown]
  - Therapy change [Recovering/Resolving]
  - Drug ineffective [Unknown]
  - Off label use [Unknown]
